FAERS Safety Report 9539296 (Version 1)
Quarter: 2013Q2

REPORT INFORMATION
  Report Type: Spontaneous
  Country: US (occurrence: None)
  Receive Date: 20130517
  Receipt Date: 20130517
  Transmission Date: 20140414
  Serious: No
  Sender: FDA-Public Use
  Company Number: 1000042837

PATIENT
  Age: 54 Year
  Sex: Male

DRUGS (3)
  1. VIIBRYD (VILAZODONE HYDROCHLORIDE) (TABLETS) [Suspect]
     Indication: DEPRESSION
     Route: 048
  2. KLONOPIN (CLONAZEPAM) [Concomitant]
  3. ROZEREM (RAMELTEON) [Concomitant]

REACTIONS (1)
  - Obsessive-compulsive disorder [None]
